FAERS Safety Report 7814781-8 (Version None)
Quarter: 2011Q4

REPORT INFORMATION
  Report Type: 
  Country: None (occurrence: None)
  Receive Date: 20111014
  Receipt Date: 20111011
  Transmission Date: 20120403
  Serious: Yes (Life-Threatening)
  Sender: FDA-Public Use
  Company Number: DE-ROCHE-794874

PATIENT
  Sex: Male
  Weight: 63.1 kg

DRUGS (6)
  1. CALCIUM NOS [Concomitant]
     Indication: PREMEDICATION
     Route: 042
  2. XELODA [Suspect]
     Indication: COLON CANCER
     Route: 048
     Dates: start: 20110616, end: 20110620
  3. GRANISETRON [Concomitant]
     Indication: PROPHYLAXIS OF NAUSEA AND VOMITING
     Route: 042
  4. MAGNESIUM [Concomitant]
     Indication: PREMEDICATION
     Route: 042
  5. OXALIPLATIN [Concomitant]
     Indication: COLON CANCER
     Route: 042
  6. DEXAMETHASONE [Concomitant]
     Indication: PROPHYLAXIS OF NAUSEA AND VOMITING
     Route: 042

REACTIONS (1)
  - ARTERIOSPASM CORONARY [None]
